FAERS Safety Report 4749441-3 (Version None)
Quarter: 2005Q3

REPORT INFORMATION
  Report Type: 
  Country: None (occurrence: None)
  Receive Date: 20050822
  Receipt Date: 20050810
  Transmission Date: 20060218
  Serious: Yes (Other)
  Sender: FDA-Public Use
  Company Number: US-JNJFOC-20050802751

PATIENT

DRUGS (1)
  1. REMICADE [Suspect]
     Indication: CROHN'S DISEASE

REACTIONS (1)
  - NEOPLASM MALIGNANT [None]
